FAERS Safety Report 7998040-9 (Version None)
Quarter: 2011Q4

REPORT INFORMATION
  Report Type: 
  Country: None (occurrence: None)
  Receive Date: 20111221
  Receipt Date: 20101208
  Transmission Date: 20120403
  Serious: No
  Sender: FDA-Public Use
  Company Number: US-GLAXOSMITHKLINE-A0898584A

PATIENT
  Age: 84 Year
  Sex: Female

DRUGS (6)
  1. ALLOPURINOL [Concomitant]
  2. LEVOTHYROXINE SODIUM [Concomitant]
  3. PROPRANOLOL [Concomitant]
  4. LOVAZA [Suspect]
     Indication: BLOOD TRIGLYCERIDES INCREASED
     Dosage: 2G TWICE PER DAY
     Route: 048
     Dates: start: 20090101
  5. SPIRONOLACTONE [Concomitant]
  6. TAMOXIFEN [Concomitant]

REACTIONS (1)
  - DRUG INEFFECTIVE [None]
